FAERS Safety Report 7998150-6 (Version None)
Quarter: 2011Q4

REPORT INFORMATION
  Report Type: 
  Country: None (occurrence: None)
  Receive Date: 20111221
  Receipt Date: 20110309
  Transmission Date: 20120403
  Serious: No
  Sender: FDA-Public Use
  Company Number: US-GLAXOSMITHKLINE-A0917363A

PATIENT
  Age: 65 Year
  Sex: Female

DRUGS (4)
  1. LOVAZA [Suspect]
     Indication: HYPERCHOLESTEROLAEMIA
     Route: 048
     Dates: start: 20110305, end: 20110308
  2. METROGEL [Concomitant]
     Route: 061
  3. LOVASTATIN [Concomitant]
  4. BONIVA [Concomitant]

REACTIONS (3)
  - PRODUCT QUALITY ISSUE [None]
  - NAUSEA [None]
  - VOMITING [None]
